FAERS Safety Report 4318854-6 (Version None)
Quarter: 2004Q1

REPORT INFORMATION
  Report Type: 
  Country: None (occurrence: None)
  Receive Date: 20040315
  Receipt Date: 20040301
  Transmission Date: 20041129
  Serious: Yes (Death, Hospitalization)
  Sender: FDA-Public Use
  Company Number: 04P-056-0251922-00

PATIENT
  Age: 82 Year
  Sex: Female

DRUGS (10)
  1. DEPAKENE [Suspect]
     Indication: STATUS EPILEPTICUS
     Dates: start: 20031230, end: 20040131
  2. TRICOR [Suspect]
     Dosage: 200 MG, 1 IN 1 D, ORAL
     Route: 048
  3. CLOBAZAM [Suspect]
     Indication: STATUS EPILEPTICUS
     Dosage: ORAL
     Route: 048
     Dates: start: 20031230, end: 20040108
  4. CLONAZEPAM [Suspect]
     Indication: STATUS EPILEPTICUS
     Dosage: INTRAVENOUS
     Route: 042
  5. AMPHOTERICIN B [Suspect]
     Dates: start: 20040111, end: 20040112
  6. AMOXICILLIN AND CLAVULANATE POTASSIUM [Suspect]
     Dates: start: 20031223, end: 20040105
  7. OFLOXACIN [Suspect]
     Dates: start: 20031229, end: 20040105
  8. TRIMETAZIDINE HYDROCHLORIDE [Suspect]
     Dosage: 20 MG, 1 IN 1 D, ORAL
     Route: 048
  9. OSYROL-LASIX [Suspect]
     Dosage: 70 MG, 1 IN 1 D, ORAL
     Route: 048
  10. NORFLOXACIN [Suspect]
     Dosage: 400 MG, 1 IN 1 D, ORAL
     Route: 048
     Dates: start: 20031228, end: 20031229

REACTIONS (9)
  - CARDIAC ARREST [None]
  - CONFUSIONAL STATE [None]
  - HYPERAMMONAEMIA [None]
  - LOSS OF CONSCIOUSNESS [None]
  - MALAISE [None]
  - METABOLIC ENCEPHALOPATHY [None]
  - OXYGEN SATURATION DECREASED [None]
  - SOMNOLENCE [None]
  - STATUS EPILEPTICUS [None]
